FAERS Safety Report 21025062 (Version 1)
Quarter: 2022Q2

REPORT INFORMATION
  Report Type: Spontaneous
  Country: US (occurrence: None)
  Receive Date: 20220629
  Receipt Date: 20220629
  Transmission Date: 20220721
  Serious: Yes (Hospitalization)
  Sender: FDA-Public Use
  Company Number: US-ROCHE-3122913

PATIENT
  Sex: Female
  Weight: 81.9 kg

DRUGS (1)
  1. OCREVUS [Suspect]
     Active Substance: OCRELIZUMAB
     Indication: Relapsing-remitting multiple sclerosis
     Dosage: LAST INFUSION- /MAR/2022
     Route: 042
     Dates: start: 201710

REACTIONS (4)
  - Gonorrhoea [Recovered/Resolved]
  - Syphilis [Not Recovered/Not Resolved]
  - Incontinence [Not Recovered/Not Resolved]
  - Bladder dysfunction [Unknown]

NARRATIVE: CASE EVENT DATE: 20200101
